FAERS Safety Report 24046347 (Version 2)
Quarter: 2024Q3

REPORT INFORMATION
  Report Type: Report from Study
  Country: EG (occurrence: EG)
  Receive Date: 20240703
  Receipt Date: 20240709
  Transmission Date: 20241016
  Serious: Yes (Life-Threatening, Other)
  Sender: NOVARTIS
  Company Number: EG-002147023-NVSC2024EG137371

PATIENT
  Sex: Female
  Weight: 70 kg

DRUGS (11)
  1. ENTRESTO [Suspect]
     Active Substance: SACUBITRIL\VALSARTAN
     Indication: Cardiac failure
     Dosage: 50 MG
     Route: 048
  2. ENTRESTO [Suspect]
     Active Substance: SACUBITRIL\VALSARTAN
     Dosage: 1 DOSAGE FORM, BID
     Route: 048
     Dates: start: 20240110
  3. NEXIUM [Concomitant]
     Active Substance: ESOMEPRAZOLE MAGNESIUM
     Indication: Peptic ulcer
     Dosage: 1 CAPSULE ONCE DAILY AND WHEN LOKELMA IS TAKEN 2 CAPSULES
     Route: 048
  4. PIRIBEDIL [Concomitant]
     Active Substance: PIRIBEDIL
     Indication: Tremor
     Dosage: 1 DOSAGE FORM (1 TABLET ONCE DAILY)
     Route: 048
  5. NEBIVOLOL HYDROCHLORIDE [Concomitant]
     Active Substance: NEBIVOLOL HYDROCHLORIDE
     Indication: Hypertension
     Dosage: 1 DOSAGE FORM, QD (1 TABLET)
     Route: 048
  6. FUROSEMIDE\SPIRONOLACTONE [Concomitant]
     Active Substance: FUROSEMIDE\SPIRONOLACTONE
     Indication: Polyuria
     Dosage: 1 DOSAGE FORM, QD (1 CAPSULE)
     Route: 048
     Dates: start: 20240110
  7. DIMETHICONE\MEBEVERINE [Concomitant]
     Active Substance: DIMETHICONE\MEBEVERINE
     Indication: Irritable bowel syndrome
     Dosage: 1 DOSAGE FORM, QD (1 CAPSULE)
     Route: 048
  8. RIVAROXABAN [Concomitant]
     Active Substance: RIVAROXABAN
     Indication: Coagulation time
     Dosage: 1 DOSAGE FORM, QD (1 CAPSULE ONCE DAILY)
     Route: 048
     Dates: start: 20240110
  9. CRESTOR [Concomitant]
     Active Substance: ROSUVASTATIN CALCIUM
     Indication: Blood triglycerides
     Dosage: 1 DOSAGE FORM, QD (1 TABLET)
     Route: 048
     Dates: start: 20240110
  10. TRENTAL [Concomitant]
     Active Substance: PENTOXIFYLLINE
     Indication: Poor peripheral circulation
     Dosage: 1 DOSAGE FORM, QD (1 TABLET)
     Route: 048
     Dates: start: 20240110
  11. EUTHYROX [Concomitant]
     Active Substance: LEVOTHYROXINE SODIUM
     Indication: Hypothyroidism
     Dosage: 1 DOSAGE FORM, QD (1 TABLET)
     Route: 048

REACTIONS (4)
  - Blood potassium increased [Recovering/Resolving]
  - Renal impairment [Recovering/Resolving]
  - Erythema [Recovered/Resolved]
  - Inflammation [Recovered/Resolved]
